FAERS Safety Report 26061507 (Version 1)
Quarter: 2025Q4

REPORT INFORMATION
  Report Type: Spontaneous
  Country: US (occurrence: US)
  Receive Date: 20251118
  Receipt Date: 20251118
  Transmission Date: 20260117
  Serious: No
  Sender: NOVO NORDISK
  Company Number: US-NOVOPROD-1509028

PATIENT

DRUGS (1)
  1. INSULIN ASPART [Suspect]
     Active Substance: INSULIN ASPART
     Indication: Product used for unknown indication
     Dosage: 5-10 UNITS 3 TIMES A DAY
     Dates: start: 202504

REACTIONS (4)
  - Illness [Unknown]
  - Wrong technique in product usage process [Unknown]
  - Device breakage [Unknown]
  - Device leakage [Unknown]
